FAERS Safety Report 13014234 (Version 3)
Quarter: 2017Q1

REPORT INFORMATION
  Report Type: Spontaneous
  Country: HR (occurrence: HR)
  Receive Date: 20161209
  Receipt Date: 20170126
  Transmission Date: 20170428
  Serious: Yes (Life-Threatening, Other)
  Sender: FDA-Public Use
  Company Number: HR-ALLERGAN-1679736US

PATIENT
  Sex: Female

DRUGS (8)
  1. CYMBALTA /DULOXETINE [Concomitant]
     Indication: WITHDRAWAL SYNDROME
     Route: 065
  2. ESCITALOPRAM OXALATE - BP [Suspect]
     Active Substance: ESCITALOPRAM OXALATE
     Indication: AUTONOMIC NERVOUS SYSTEM IMBALANCE
     Dosage: UNK UNK, UNKNOWN
     Route: 065
     Dates: end: 201504
  3. DEANXIT/FLUPENTIXOL + MELITRACEN [Concomitant]
     Indication: AUTONOMIC NERVOUS SYSTEM IMBALANCE
     Dosage: UNK
     Route: 065
     Dates: end: 201504
  4. FLUOXETINE [Concomitant]
     Active Substance: FLUOXETINE HYDROCHLORIDE
     Indication: WITHDRAWAL SYNDROME
     Dosage: UNK MG, UNK
     Route: 065
  5. BENADRYL/DIPHENHYDRAMINE [Concomitant]
     Indication: WITHDRAWAL SYNDROME
     Route: 065
  6. CYMBALTA /DULOXETINE [Concomitant]
     Indication: AUTONOMIC NERVOUS SYSTEM IMBALANCE
  7. CLONAZEPAM. [Concomitant]
     Active Substance: CLONAZEPAM
     Indication: WITHDRAWAL SYNDROME
     Dosage: 20 MG, UNK
     Route: 065
  8. ESCITALOPRAM OXALATE - BP [Suspect]
     Active Substance: ESCITALOPRAM OXALATE
     Indication: WITHDRAWAL SYNDROME

REACTIONS (3)
  - Withdrawal syndrome [Not Recovered/Not Resolved]
  - Product use issue [Unknown]
  - Serotonin syndrome [Not Recovered/Not Resolved]
